FAERS Safety Report 9121968 (Version 1)
Quarter: 2013Q1

REPORT INFORMATION
  Report Type: Spontaneous
  Country: JP (occurrence: JP)
  Receive Date: 20130114
  Receipt Date: 20130114
  Transmission Date: 20140127
  Serious: Yes (Hospitalization)
  Sender: FDA-Public Use
  Company Number: JP-009507513-1301JPN004588

PATIENT
  Age: 84 Year
  Sex: Female
  Weight: 35 kg

DRUGS (4)
  1. FOSAMAC TABLETS 35MG [Suspect]
     Indication: OSTEOPOROSIS
     Dosage: 35 MG, QW
     Route: 048
     Dates: start: 20091008, end: 20120409
  2. FOSAMAC TABLETS-5 [Suspect]
     Indication: OSTEOPOROSIS
     Dosage: 5 MG, QD
     Route: 048
     Dates: start: 20081021, end: 20091007
  3. WARKMIN [Concomitant]
     Indication: OSTEOPOROSIS
     Dosage: 1 MICROGRAM, QD
     Dates: end: 20120409
  4. FORTEO [Concomitant]
     Indication: OSTEOPOROSIS
     Dosage: 20 MICROGRAM, QD
     Route: 058
     Dates: start: 20120410

REACTIONS (1)
  - Femur fracture [Recovered/Resolved]
